FAERS Safety Report 8862358 (Version 1)
Quarter: 2012Q4

REPORT INFORMATION
  Report Type: 
  Country: TW (occurrence: TW)
  Receive Date: 20121026
  Receipt Date: 20121026
  Transmission Date: 20130627
  Serious: Yes (Life-Threatening, Hospitalization, Other)
  Sender: FDA-Public Use
  Company Number: TW-BAYER-2012-112694

PATIENT
  Age: 68 Year
  Sex: Male

DRUGS (1)
  1. ULTRAVIST [Suspect]
     Indication: INTRAVENOUS PYELOGRAPHY
     Dosage: 50 ml, UNK
     Dates: start: 20121019, end: 20121019

REACTIONS (2)
  - Acute myocardial infarction [Unknown]
  - Loss of consciousness [Unknown]
